FAERS Safety Report 11781633 (Version 1)
Quarter: 2015Q4

REPORT INFORMATION
  Report Type: Spontaneous
  Country: US (occurrence: US)
  Receive Date: 20151126
  Receipt Date: 20151126
  Transmission Date: 20160305
  Serious: Yes (Other)
  Sender: FDA-Public Use
  Company Number: US-PFIZER INC-2015389769

PATIENT
  Age: 14 Month
  Sex: Male

DRUGS (1)
  1. PHENYTOIN SODIUM. [Suspect]
     Active Substance: PHENYTOIN SODIUM
     Indication: SEIZURE
     Dosage: 15 MG/KG, UNK
     Route: 042

REACTIONS (5)
  - Extravasation [Unknown]
  - Pulse absent [Recovered/Resolved]
  - Erythema [Recovered/Resolved]
  - Purple glove syndrome [Recovered/Resolved]
  - Peripheral swelling [Recovered/Resolved]
